FAERS Safety Report 7554657-7 (Version None)
Quarter: 2011Q2

REPORT INFORMATION
  Report Type: 
  Country: None (occurrence: None)
  Receive Date: 20110617
  Receipt Date: 20110613
  Transmission Date: 20111010
  Serious: Yes (Other)
  Sender: FDA-Public Use
  Company Number: US-PFIZER INC-2011129144

PATIENT
  Sex: Male
  Weight: 41.723 kg

DRUGS (2)
  1. CHILDREN'S ADVIL [Suspect]
     Dosage: UNK
     Dates: start: 20110612
  2. TYLENOL-500 [Suspect]
     Indication: PYREXIA
     Dosage: UNK
     Dates: start: 20110101

REACTIONS (5)
  - ANXIETY [None]
  - DELIRIUM [None]
  - ALTERED STATE OF CONSCIOUSNESS [None]
  - SCREAMING [None]
  - CIRCUMSTANCE OR INFORMATION CAPABLE OF LEADING TO MEDICATION ERROR [None]
